FAERS Safety Report 6600661-2 (Version None)
Quarter: 2010Q1

REPORT INFORMATION
  Report Type: 
  Country: None (occurrence: None)
  Receive Date: 20100223
  Receipt Date: 20100223
  Transmission Date: 20100710
  Serious: Yes (Other)
  Sender: FDA-Public Use
  Company Number: None

PATIENT
  Age: 10 Year
  Sex: Male

DRUGS (2)
  1. SINGULAIR [Suspect]
     Indication: ASTHMA
     Dosage: ONCE A DAY DAILY AS NEEDED
     Dates: start: 20040101, end: 20091211
  2. SINGULAIR [Suspect]
     Indication: HYPERSENSITIVITY
     Dosage: ONCE A DAY DAILY AS NEEDED
     Dates: start: 20040101, end: 20091211

REACTIONS (4)
  - ANXIETY [None]
  - FEAR [None]
  - HALLUCINATION [None]
  - PARANOIA [None]
